FAERS Safety Report 15447821 (Version 1)
Quarter: 2018Q3

REPORT INFORMATION
  Report Type: Spontaneous
  Country: SK (occurrence: SK)
  Receive Date: 20180928
  Receipt Date: 20180928
  Transmission Date: 20181010
  Serious: Yes (Disabling, Other)
  Sender: FDA-Public Use
  Company Number: SK-ABBVIE-18K-260-2502721-00

PATIENT
  Age: 63 Year
  Sex: Female
  Weight: 85 kg

DRUGS (1)
  1. HUMIRA [Suspect]
     Active Substance: ADALIMUMAB
     Indication: PSORIASIS
     Route: 058
     Dates: start: 20160621, end: 20170418

REACTIONS (1)
  - Tonsillar hypertrophy [Recovered/Resolved with Sequelae]

NARRATIVE: CASE EVENT DATE: 20161101
